FAERS Safety Report 9321664 (Version 1)
Quarter: 2013Q2

REPORT INFORMATION
  Report Type: Spontaneous
  Country: US (occurrence: US)
  Receive Date: 20130531
  Receipt Date: 20130531
  Transmission Date: 20140414
  Serious: No
  Sender: FDA-Public Use
  Company Number: US-TEVA-408707USA

PATIENT
  Age: 90 Year
  Sex: Male
  Weight: 77.18 kg

DRUGS (3)
  1. AZILECT [Suspect]
     Indication: PARKINSON^S DISEASE
     Dosage: .5 MILLIGRAM DAILY;
     Route: 048
     Dates: start: 20130424
  2. LOSARTAN [Concomitant]
     Indication: HYPERTENSION
  3. LORAZEPAM [Concomitant]
     Indication: ANXIETY

REACTIONS (1)
  - Tremor [Not Recovered/Not Resolved]
